FAERS Safety Report 8891977 (Version 1)
Quarter: 2012Q4

REPORT INFORMATION
  Report Type: Spontaneous
  Country: US (occurrence: None)
  Receive Date: 20121105
  Receipt Date: 20121105
  Transmission Date: 20130627
  Serious: Yes (Other)
  Sender: FDA-Public Use
  Company Number: None

PATIENT
  Age: 26 Year
  Sex: Male
  Weight: 102.97 kg

DRUGS (1)
  1. PROPECIA [Suspect]
     Indication: HAIR LOSS
     Dosage: one daily po
     Route: 048
     Dates: start: 20030304, end: 20100304

REACTIONS (15)
  - Erectile dysfunction [None]
  - Loss of libido [None]
  - Suicidal ideation [None]
  - Muscle atrophy [None]
  - Abnormal weight gain [None]
  - Disturbance in attention [None]
  - Learning disorder [None]
  - Thinking abnormal [None]
  - Aphasia [None]
  - Dysphemia [None]
  - Anxiety [None]
  - Blood testosterone decreased [None]
  - Anorgasmia [None]
  - Blood oestrogen increased [None]
  - Asthenia [None]
